FAERS Safety Report 8049800-X (Version None)
Quarter: 2012Q1

REPORT INFORMATION
  Report Type: 
  Country: None (occurrence: None)
  Receive Date: 20120117
  Receipt Date: 20120109
  Transmission Date: 20120608
  Serious: Yes (Other)
  Sender: FDA-Public Use
  Company Number: US-ROCHE-1030471

PATIENT
  Sex: Female

DRUGS (1)
  1. LUCENTIS [Suspect]
     Indication: AGE-RELATED MACULAR DEGENERATION
     Route: 050
     Dates: start: 20110601

REACTIONS (4)
  - CHOROIDAL NEOVASCULARISATION [None]
  - AGE-RELATED MACULAR DEGENERATION [None]
  - DRUG EFFECT DECREASED [None]
  - VISUAL ACUITY REDUCED [None]
